FAERS Safety Report 16762595 (Version 2)
Quarter: 2020Q1

REPORT INFORMATION
  Report Type: Spontaneous
  Country: GB (occurrence: GB)
  Receive Date: 20190831
  Receipt Date: 20200311
  Transmission Date: 20200409
  Serious: Yes (Other)
  Sender: FDA-Public Use
  Company Number: GB-ADVANZ PHARMA-E2B_00003024

PATIENT

DRUGS (10)
  1. ASPIRIN. [Suspect]
     Active Substance: ASPIRIN
     Dosage: 75 MG, QD
  2. LANSOPRAZOLE. [Suspect]
     Active Substance: LANSOPRAZOLE
     Dosage: 30 MG, QD
  3. AMIODARONE [Suspect]
     Active Substance: AMIODARONE
     Dosage: 200 MG, QD
  4. ACIPIMOX [Suspect]
     Active Substance: ACIPIMOX
     Dosage: 500 MG, QD
  5. FUROSEMIDE. [Suspect]
     Active Substance: FUROSEMIDE
     Dosage: 120 MG, QD
  6. PERINDOPRIL [Suspect]
     Active Substance: PERINDOPRIL
     Dosage: 2 MG, QD
  7. DIGOXIN. [Suspect]
     Active Substance: DIGOXIN
     Dosage: 0.13 MG, QD
  8. WARFARIN [Concomitant]
     Active Substance: WARFARIN
     Dosage: UNK
  9. EZETROL [Suspect]
     Active Substance: EZETIMIBE
     Dosage: 10 MG, QD
     Route: 048
  10. BISOPROLOL [Suspect]
     Active Substance: BISOPROLOL
     Dosage: 7.5 MG, QD (2 MG IN MORNING AND 5 MG LATER)

REACTIONS (14)
  - Dyspnoea [Unknown]
  - Drug ineffective [Unknown]
  - Cardiac murmur [Unknown]
  - Oedema [Unknown]
  - Dissociation [Unknown]
  - Fatigue [Unknown]
  - Left ventricular dysfunction [Unknown]
  - Ventricular tachycardia [Unknown]
  - Atrial fibrillation [Unknown]
  - Oedema peripheral [Unknown]
  - Feeling abnormal [Unknown]
  - Dizziness [Unknown]
  - Paraesthesia [Unknown]
  - Venous pressure jugular increased [Unknown]
